FAERS Safety Report 13550048 (Version 2)
Quarter: 2017Q2

REPORT INFORMATION
  Report Type: Spontaneous
  Country: DE (occurrence: DE)
  Receive Date: 20170516
  Receipt Date: 20170524
  Transmission Date: 20170830
  Serious: Yes (Other)
  Sender: FDA-Public Use
  Company Number: DE-AUROBINDO-AUR-APL-2017-34131

PATIENT
  Age: 45 Year
  Sex: Female

DRUGS (7)
  1. QUETIAPINE. [Suspect]
     Active Substance: QUETIAPINE
     Indication: DEPRESSION
  2. MIRTAZAPINE. [Concomitant]
     Active Substance: MIRTAZAPINE
     Indication: PRODUCT USED FOR UNKNOWN INDICATION
     Dosage: 30 MG, DAILY
     Route: 065
  3. QUETIAPINE. [Suspect]
     Active Substance: QUETIAPINE
     Indication: AGITATION
     Dosage: 300 MG, UNK
     Route: 065
  4. PAROXETINE. [Concomitant]
     Active Substance: PAROXETINE
     Indication: AGITATION
  5. VENLAFAXINE [Concomitant]
     Active Substance: VENLAFAXINE HYDROCHLORIDE
     Indication: PRODUCT USED FOR UNKNOWN INDICATION
  6. LITHIUM. [Suspect]
     Active Substance: LITHIUM
     Indication: AGITATION
     Dosage: 450 MG, ONCE A DAY
     Route: 065
  7. LORAZEPAM. [Concomitant]
     Active Substance: LORAZEPAM
     Indication: PRODUCT USED FOR UNKNOWN INDICATION

REACTIONS (12)
  - White blood cell count increased [Recovered/Resolved]
  - Agitation [Recovered/Resolved]
  - Blood creatinine increased [Recovered/Resolved]
  - Delirium [Recovered/Resolved]
  - Tachycardia [Recovered/Resolved]
  - Serotonin syndrome [Recovered/Resolved]
  - Hyperreflexia [Recovered/Resolved]
  - Disinhibition [Recovered/Resolved]
  - Disturbance in attention [Recovered/Resolved]
  - Condition aggravated [Recovered/Resolved]
  - Hallucination, visual [Recovered/Resolved]
  - Psychomotor hyperactivity [Recovered/Resolved]
